FAERS Safety Report 5528722-X (Version None)
Quarter: 2007Q4

REPORT INFORMATION
  Report Type: 
  Country: None (occurrence: None)
  Receive Date: 20071114
  Receipt Date: 20071003
  Transmission Date: 20080405
  Serious: Yes (Other)
  Sender: FDA-Public Use
  Company Number: 07-002025

PATIENT
  Sex: Female

DRUGS (1)
  1. FEMHRT [Suspect]

REACTIONS (1)
  - PULMONARY EMBOLISM [None]
